FAERS Safety Report 7095570-1 (Version None)
Quarter: 2010Q4

REPORT INFORMATION
  Report Type: 
  Country: None (occurrence: None)
  Receive Date: 20101111
  Receipt Date: 20101102
  Transmission Date: 20110411
  Serious: Yes (Disabling)
  Sender: FDA-Public Use
  Company Number: FR-ASTRAZENECA-2010SE14416

PATIENT
  Age: 24327 Day
  Sex: Male

DRUGS (6)
  1. CRESTOR [Suspect]
     Route: 048
     Dates: start: 20091114
  2. PANDEMRIX [Suspect]
     Route: 030
     Dates: start: 20100103, end: 20100103
  3. CELIPROLOL [Concomitant]
  4. KARDEGIC [Concomitant]
  5. PIASCLEDINE [Concomitant]
  6. INFLUVA [Concomitant]
     Indication: INFLUENZA
     Dates: start: 20091103, end: 20091103

REACTIONS (1)
  - TENDONITIS [None]
